FAERS Safety Report 14827443 (Version 1)
Quarter: 2018Q2

REPORT INFORMATION
  Report Type: Spontaneous
  Country: US (occurrence: US)
  Receive Date: 20180417
  Receipt Date: 20180417
  Transmission Date: 20180711
  Serious: Yes (Death)
  Sender: FDA-Public Use
  Company Number: None

PATIENT
  Age: 82 Year
  Sex: Male
  Weight: 92.41 kg

DRUGS (1)
  1. WARFARIN [Suspect]
     Active Substance: WARFARIN
     Indication: HAEMORRHAGE INTRACRANIAL
     Dates: start: 20170216, end: 20180118

REACTIONS (9)
  - Cardio-respiratory arrest [None]
  - Subarachnoid haemorrhage [None]
  - International normalised ratio increased [None]
  - Acute respiratory failure [None]
  - Heart rate increased [None]
  - Intraventricular haemorrhage [None]
  - Pain [None]
  - Blood pressure increased [None]
  - Neurological decompensation [None]

NARRATIVE: CASE EVENT DATE: 20180118
